FAERS Safety Report 15793118 (Version 1)
Quarter: 2019Q1

REPORT INFORMATION
  Report Type: Spontaneous
  Country: US (occurrence: US)
  Receive Date: 20190103
  Receipt Date: 20190103
  Transmission Date: 20190417
  Serious: No
  Sender: FDA-Public Use
  Company Number: None

PATIENT

DRUGS (2)
  1. PROZAC [Suspect]
     Active Substance: FLUOXETINE HYDROCHLORIDE
  2. TRAMADOL HCL [Suspect]
     Active Substance: TRAMADOL HYDROCHLORIDE

REACTIONS (4)
  - Condition aggravated [None]
  - Product prescribing issue [None]
  - Drug interaction [None]
  - Product communication issue [None]

NARRATIVE: CASE EVENT DATE: 2018
